FAERS Safety Report 5038648-6 (Version None)
Quarter: 2006Q2

REPORT INFORMATION
  Report Type: 
  Country: None (occurrence: None)
  Receive Date: 20060623
  Receipt Date: 20060608
  Transmission Date: 20061013
  Serious: Yes (Hospitalization)
  Sender: FDA-Public Use
  Company Number: 2006030491

PATIENT
  Age: 57 Year
  Sex: Female
  Weight: 72 kg

DRUGS (7)
  1. FLUCONAZOLE [Suspect]
     Indication: FUNGAL INFECTION
     Dosage: 50 MG (50 MG, 1 IN 1 D), ORAL
     Route: 048
     Dates: start: 20060223, end: 20060301
  2. FLUCONAZOLE [Suspect]
     Indication: FUNGAL INFECTION
     Dosage: 50 MG (50 MG, 1 IN 1 D), ORAL
     Route: 048
     Dates: start: 20060301
  3. SUTENT [Suspect]
     Indication: GASTROINTESTINAL STROMAL TUMOUR
     Dosage: 50 MG (50 MG, 1 IN 1 D), ORAL
     Route: 048
     Dates: start: 20060104, end: 20060220
  4. CENTYL MITE W/POTASSIUM CHLORIDE (BENDROFLUMETHIAZIDE, POTASSIUM CHLOR [Concomitant]
  5. PROPRANOLOL [Concomitant]
  6. ZOLPIDEM (ZOLPIDEM) [Concomitant]
  7. KALEROID (POTASSIUM CHLORIDE) [Concomitant]

REACTIONS (7)
  - DRUG INTERACTION [None]
  - FUNGAL INFECTION [None]
  - GASTROINTESTINAL STROMAL TUMOUR [None]
  - GENERAL PHYSICAL HEALTH DETERIORATION [None]
  - NAUSEA [None]
  - NEOPLASM PROGRESSION [None]
  - VOMITING [None]
